FAERS Safety Report 9547821 (Version 1)
Quarter: 2013Q3

REPORT INFORMATION
  Report Type: Spontaneous
  Country: US (occurrence: None)
  Receive Date: 20130702
  Receipt Date: 20130702
  Transmission Date: 20140515
  Serious: Yes (Life-Threatening, Hospitalization)
  Sender: FDA-Public Use
  Company Number: 2013-01241(0)

PATIENT
  Age: 12 Year
  Sex: Female

DRUGS (2)
  1. LAMOTRIGINE (UNKNOWN) [Suspect]
     Indication: CONVULSION
     Dosage: 25 MG (UNKNOWN,DAILY), UNKNOWN?
  2. LEVETIRACETAM (UNKNOWN) (LEVETIRACETAM) [Suspect]
     Dosage: 1500 MG (UNKNOWN,DAILY), UNKNOWN

REACTIONS (1)
  - Toxic epidermal necrolysis [None]
